FAERS Safety Report 24876676 (Version 3)
Quarter: 2025Q2

REPORT INFORMATION
  Report Type: Report from Study
  Country: US (occurrence: US)
  Receive Date: 20250123
  Receipt Date: 20250403
  Transmission Date: 20250717
  Serious: Yes (Hospitalization, Other)
  Sender: ABBVIE
  Company Number: US-ABBVIE-6092660

PATIENT
  Age: 64 Year
  Sex: Female

DRUGS (3)
  1. SKYRIZI [Suspect]
     Active Substance: RISANKIZUMAB-RZAA
     Indication: Crohn^s disease
     Route: 058
     Dates: start: 20240625
  2. SKYRIZI [Suspect]
     Active Substance: RISANKIZUMAB-RZAA
     Route: 058
     Dates: start: 20240917
  3. KEYTRUDA [Suspect]
     Active Substance: PEMBROLIZUMAB
     Indication: Product used for unknown indication
     Route: 065

REACTIONS (11)
  - Chemotherapy [Unknown]
  - Adverse drug reaction [Unknown]
  - Illness [Unknown]
  - Dizziness [Unknown]
  - Toxicity to various agents [Unknown]
  - Cellulitis [Unknown]
  - Colitis [Unknown]
  - Gait disturbance [Unknown]
  - Enteritis [Unknown]
  - Impaired work ability [Unknown]
  - Gastritis [Unknown]

NARRATIVE: CASE EVENT DATE: 20241102
